FAERS Safety Report 24449046 (Version 1)
Quarter: 2024Q4

REPORT INFORMATION
  Report Type: Spontaneous
  Country: US (occurrence: US)
  Receive Date: 20241017
  Receipt Date: 20241017
  Transmission Date: 20250114
  Serious: No
  Sender: INVENTIA HEALTHCARE
  Company Number: US-Inventia-000730

PATIENT

DRUGS (1)
  1. LANSOPRAZOLE [Suspect]
     Active Substance: LANSOPRAZOLE
     Indication: Gastrooesophageal reflux disease
     Dosage: DELAYED RELEASE CAPSULES, STRENGTH: 30 MG

REACTIONS (2)
  - Product substitution issue [Unknown]
  - Drug ineffective [Unknown]
